FAERS Safety Report 4682807-9 (Version None)
Quarter: 2005Q2

REPORT INFORMATION
  Report Type: 
  Country: None (occurrence: None)
  Receive Date: 20050606
  Receipt Date: 20050531
  Transmission Date: 20051028
  Serious: Yes (Hospitalization)
  Sender: FDA-Public Use
  Company Number: 2005CG01020

PATIENT
  Age: 40 Year
  Sex: Male

DRUGS (2)
  1. ZESTRIL [Suspect]
     Route: 048
     Dates: start: 20050315, end: 20050315
  2. MONO-TILDIEM [Suspect]
     Route: 048
     Dates: start: 20050315, end: 20050315

REACTIONS (7)
  - HYPOTENSION [None]
  - INTENTIONAL MISUSE [None]
  - ISCHAEMIA [None]
  - OVERDOSE [None]
  - RENAL FAILURE ACUTE [None]
  - RESUSCITATION [None]
  - VENTRICULAR EXTRASYSTOLES [None]
